FAERS Safety Report 4313399-1 (Version None)
Quarter: 2004Q1

REPORT INFORMATION
  Report Type: 
  Country: None (occurrence: None)
  Receive Date: 20040304
  Receipt Date: 20040216
  Transmission Date: 20041129
  Serious: Yes (Hospitalization)
  Sender: FDA-Public Use
  Company Number: USA040156166

PATIENT
  Age: 85 Year
  Sex: Female
  Weight: 50 kg

DRUGS (9)
  1. FORTEO [Suspect]
     Indication: OSTEOPOROSIS
     Dosage: 20 UG/DAY
     Dates: start: 20031016
  2. FLEXERIL [Concomitant]
  3. VIOXX [Concomitant]
  4. PERCOCET [Concomitant]
  5. SYNTHROID [Concomitant]
  6. NORVASC [Concomitant]
  7. ATIVAN [Concomitant]
  8. CALCIUM WITH VITAMIN D [Concomitant]
  9. MULTI-VITAMIN [Concomitant]

REACTIONS (5)
  - ARTHRALGIA [None]
  - BACK PAIN [None]
  - CONDITION AGGRAVATED [None]
  - MUSCULOSKELETAL STIFFNESS [None]
  - PHARMACEUTICAL PRODUCT COMPLAINT [None]
